FAERS Safety Report 13239312 (Version 2)
Quarter: 2017Q1

REPORT INFORMATION
  Report Type: Spontaneous
  Country: US (occurrence: US)
  Receive Date: 20170216
  Receipt Date: 20170217
  Transmission Date: 20170428
  Serious: No
  Sender: FDA-Public Use
  Company Number: US-BAYER-2017-031085

PATIENT
  Sex: Female

DRUGS (1)
  1. ALEVE [Suspect]
     Active Substance: NAPROXEN SODIUM
     Dosage: UNK

REACTIONS (6)
  - Flatulence [Unknown]
  - Nightmare [Unknown]
  - Dehydration [Unknown]
  - Muscle spasms [Unknown]
  - Diarrhoea [Unknown]
  - Hypersensitivity [None]
